FAERS Safety Report 8378747-4 (Version None)
Quarter: 2012Q2

REPORT INFORMATION
  Report Type: 
  Country: None (occurrence: None)
  Receive Date: 20120522
  Receipt Date: 20090616
  Transmission Date: 20120825
  Serious: Yes (Other)
  Sender: FDA-Public Use
  Company Number: PHHY2009TR070474

PATIENT
  Sex: Female

DRUGS (1)
  1. MIACALCIN [Suspect]
     Indication: OSTEOPOROSIS
     Dosage: 200 IU, UNK
     Route: 045
     Dates: start: 20070101, end: 20090501

REACTIONS (2)
  - CARDIAC DISORDER [None]
  - PERIPHERAL VASCULAR DISORDER [None]
